FAERS Safety Report 4790296-9 (Version None)
Quarter: 2005Q4

REPORT INFORMATION
  Report Type: 
  Country: None (occurrence: None)
  Receive Date: 20051005
  Receipt Date: 20051005
  Transmission Date: 20060501
  Serious: Yes (Life-Threatening, Hospitalization)
  Sender: FDA-Public Use
  Company Number: None

PATIENT
  Sex: Male

DRUGS (2)
  1. NPH INSULIN [Suspect]
     Indication: DIABETES MELLITUS INSULIN-DEPENDENT
     Dosage: 20 UNITS SC AM
     Route: 058
  2. REGULAR INSULIN [Suspect]
     Indication: DIABETES MELLITUS INSULIN-DEPENDENT
     Dosage: 20 UNITS SC HS
     Route: 058

REACTIONS (8)
  - ASTHENIA [None]
  - BLOOD GLUCOSE INCREASED [None]
  - DIZZINESS [None]
  - DRUG DOSE OMISSION [None]
  - PHARMACEUTICAL PRODUCT COMPLAINT [None]
  - POLYDIPSIA [None]
  - POLYURIA [None]
  - VOMITING [None]
